FAERS Safety Report 5795091-X (Version None)
Quarter: 2008Q2

REPORT INFORMATION
  Report Type: 
  Country: None (occurrence: None)
  Receive Date: 20080601
  Receipt Date: 20080127
  Transmission Date: 20081010
  Serious: No
  Sender: FDA-Public Use
  Company Number: US200801006305

PATIENT
  Age: 55 Year
  Sex: Female
  Weight: 142.9 kg

DRUGS (5)
  1. BYETTA [Suspect]
     Indication: TYPE 2 DIABETES MELLITUS
     Dosage: 5 UG, 2/D, SUBCUTANEOUS
     Route: 058
     Dates: start: 20070901
  2. ACTOS /USA/ (PIOGLITAZONE HYDROCHLORIDE) [Concomitant]
  3. AMARYL [Concomitant]
  4. METFORMIN HCL [Concomitant]
  5. FLU (INFLUENZA VACCINE) [Concomitant]

REACTIONS (10)
  - BLOOD GLUCOSE INCREASED [None]
  - CHILLS [None]
  - DIARRHOEA [None]
  - FATIGUE [None]
  - GLYCOSYLATED HAEMOGLOBIN INCREASED [None]
  - INFLUENZA [None]
  - NAUSEA [None]
  - PAIN [None]
  - PYREXIA [None]
  - VOMITING [None]
